FAERS Safety Report 8215601-2 (Version None)
Quarter: 2012Q1

REPORT INFORMATION
  Report Type: 
  Country: None (occurrence: None)
  Receive Date: 20120316
  Receipt Date: 20120305
  Transmission Date: 20120608
  Serious: Yes (Life-Threatening, Hospitalization)
  Sender: FDA-Public Use
  Company Number: BR-ROCHE-1047172

PATIENT
  Age: 80 Year
  Sex: Female

DRUGS (8)
  1. OMEPRAZOLE MAGNESIUM [Concomitant]
     Dosage: DRUG: LOSEC
  2. BOTOX [Concomitant]
  3. LUCENTIS [Suspect]
     Indication: PRODUCT USED FOR UNKNOWN INDICATION
     Route: 050
  4. CLONAZEPAM [Concomitant]
  5. LEVOTHYROXINE SODIUM [Concomitant]
  6. LUCENTIS [Suspect]
     Route: 050
     Dates: start: 20120104
  7. DRAMIN [Concomitant]
  8. LIPITOR [Concomitant]

REACTIONS (1)
  - PULMONARY EMBOLISM [None]
